FAERS Safety Report 13679016 (Version 2)
Quarter: 2017Q3

REPORT INFORMATION
  Report Type: Spontaneous
  Country: ES (occurrence: ES)
  Receive Date: 20170622
  Receipt Date: 20170705
  Transmission Date: 20171127
  Serious: Yes (Life-Threatening, Other)
  Sender: FDA-Public Use
  Company Number: ES-PFIZER INC-2017271510

PATIENT
  Age: 45 Year
  Sex: Male

DRUGS (1)
  1. METHOTREXATE. [Suspect]
     Active Substance: METHOTREXATE
     Indication: NON-HODGKIN^S LYMPHOMA
     Dosage: 18600 MG, UNK (HIGH METHOTREXATE DOSES)
     Route: 042

REACTIONS (3)
  - Chemotherapeutic drug level increased [Unknown]
  - Toxicity to various agents [Unknown]
  - Renal failure [Unknown]
